FAERS Safety Report 7603892-8 (Version None)
Quarter: 2011Q3

REPORT INFORMATION
  Report Type: 
  Country: None (occurrence: None)
  Receive Date: 20110712
  Receipt Date: 20110710
  Transmission Date: 20111222
  Serious: No
  Sender: FDA-Public Use
  Company Number: US-PFIZER INC-2011155135

PATIENT
  Sex: Female
  Weight: 68.027 kg

DRUGS (8)
  1. ABILIFY [Concomitant]
     Dosage: 5 MG, 1X/DAY
  2. CLONAZEPAM [Concomitant]
     Dosage: 1 MG, 1X/DAY
  3. HYDROCODONE [Concomitant]
     Dosage: UNK
  4. PROZAC [Concomitant]
     Dosage: 60 MG, 1X/DAY
  5. TEGRETOL [Concomitant]
     Dosage: 400 MG, 2X/DAY
  6. DEXLANSOPRAZOLE [Concomitant]
     Dosage: 60 MG, 1X/DAY
  7. NEURONTIN [Suspect]
     Indication: TRIGEMINAL NEURALGIA
     Dosage: 300 MG, 3X/DAY
     Route: 048
     Dates: start: 20110705
  8. TAPENTADOL [Concomitant]
     Dosage: 50 MG, 3X/DAY

REACTIONS (3)
  - COORDINATION ABNORMAL [None]
  - HEAD INJURY [None]
  - FALL [None]
